FAERS Safety Report 5371723-5 (Version None)
Quarter: 2007Q2

REPORT INFORMATION
  Report Type: 
  Country: None (occurrence: None)
  Receive Date: 20070625
  Receipt Date: 20070612
  Transmission Date: 20071010
  Serious: Yes (Death)
  Sender: FDA-Public Use
  Company Number: B0476125A

PATIENT
  Sex: Male

DRUGS (1)
  1. ZINACEF [Suspect]
     Dosage: 1.5 GRAM (S) TRANSPLACENTARY

REACTIONS (8)
  - APGAR SCORE LOW [None]
  - BLOOD GLUCOSE DECREASED [None]
  - CAESAREAN SECTION [None]
  - CARDIO-RESPIRATORY ARREST NEONATAL [None]
  - DEATH NEONATAL [None]
  - DRUG EXPOSURE DURING PREGNANCY [None]
  - GENERAL PHYSICAL HEALTH DETERIORATION [None]
  - NEONATAL RESPIRATORY DISTRESS SYNDROME [None]
